FAERS Safety Report 6029558-6 (Version None)
Quarter: 2009Q1

REPORT INFORMATION
  Report Type: 
  Country: None (occurrence: None)
  Receive Date: 20090107
  Receipt Date: 20081230
  Transmission Date: 20090719
  Serious: Yes (Hospitalization, Other)
  Sender: FDA-Public Use
  Company Number: US-ASTRAZENECA-2008UW19077

PATIENT
  Age: 882 Month
  Sex: Male
  Weight: 83.9 kg

DRUGS (8)
  1. NEXIUM [Suspect]
     Indication: GASTROOESOPHAGEAL REFLUX DISEASE
     Route: 048
     Dates: start: 20080601
  2. PRILOSEC [Suspect]
     Indication: GASTROOESOPHAGEAL REFLUX DISEASE
     Route: 048
     Dates: start: 20080601
  3. CORGARD [Concomitant]
  4. GAS-X [Concomitant]
  5. CRESTOR [Concomitant]
     Route: 048
  6. ASPIRIN [Concomitant]
     Dosage: 81 MG
  7. MUSCLE RELAXER [Concomitant]
  8. ANTI-ANXIETY PILLS [Concomitant]
     Dosage: PRN

REACTIONS (6)
  - BACK PAIN [None]
  - COLECTOMY [None]
  - DIZZINESS [None]
  - HEADACHE [None]
  - HYPOTENSION [None]
  - NAUSEA [None]
